FAERS Safety Report 4376260-2 (Version None)
Quarter: 2004Q2

REPORT INFORMATION
  Report Type: 
  Country: None (occurrence: None)
  Receive Date: 20040611
  Receipt Date: 20030411
  Transmission Date: 20050107
  Serious: Yes (Other)
  Sender: FDA-Public Use
  Company Number: US-MERCK-0304USA01363

PATIENT
  Age: 47 Year
  Sex: Female
  Weight: 76 kg

DRUGS (30)
  1. PANLOR SS [Concomitant]
     Indication: PAIN
     Route: 065
  2. VICODIN [Concomitant]
     Indication: PAIN
     Route: 048
  3. ZOVIRAX [Concomitant]
     Route: 048
  4. TESSALON [Concomitant]
     Route: 065
  5. DOCUSATE SODIUM [Concomitant]
     Route: 048
  6. ERYTHROMYCIN [Concomitant]
     Route: 061
  7. ETHINYL ESTRADIOL AND NORGESTIMATE [Concomitant]
     Route: 065
  8. GLUCOSAMINE [Concomitant]
     Route: 065
  9. HUMIBID [Concomitant]
     Route: 065
  10. HYDROQUINONE [Concomitant]
     Route: 061
  11. KETOCONAZOLE [Concomitant]
     Route: 061
  12. LANSOPRAZOLE [Concomitant]
     Route: 048
  13. SYNTHROID [Concomitant]
     Route: 048
  14. CLARITIN-D [Concomitant]
     Route: 048
  15. NASONEX [Concomitant]
     Route: 065
  16. PRILOSEC [Concomitant]
     Indication: GASTROOESOPHAGEAL REFLUX DISEASE
     Route: 065
  17. PRILOSEC [Concomitant]
     Route: 065
  18. OXYBUTYNIN CHLORIDE [Concomitant]
     Route: 065
  19. PAXIL [Concomitant]
     Route: 048
     Dates: start: 20000101, end: 20000701
  20. VIOXX [Suspect]
     Indication: OSTEOARTHRITIS
     Route: 048
     Dates: start: 20000407, end: 20011201
  21. VIOXX [Suspect]
     Route: 048
     Dates: start: 20020101, end: 20020101
  22. VIOXX [Suspect]
     Indication: FIBROMYALGIA
     Route: 048
     Dates: start: 20000407, end: 20011201
  23. VIOXX [Suspect]
     Route: 048
     Dates: start: 20020101, end: 20020101
  24. ULTRAM [Concomitant]
     Indication: PAIN
     Route: 065
     Dates: start: 20010101, end: 20020101
  25. TRETINOIN [Concomitant]
     Route: 061
  26. TRIAMCINOLONE [Concomitant]
     Route: 061
  27. UREA [Concomitant]
     Route: 061
  28. EFFEXOR XR [Concomitant]
     Route: 048
     Dates: start: 20000701
  29. SONATA [Concomitant]
     Indication: SLEEP DISORDER
     Route: 065
     Dates: start: 20000101, end: 20000727
  30. AMBIEN [Concomitant]
     Indication: SLEEP DISORDER
     Route: 065
     Dates: start: 20000101, end: 20000727

REACTIONS (20)
  - CHEST PAIN [None]
  - CYST [None]
  - DIABETES MELLITUS [None]
  - DIZZINESS [None]
  - DRY MOUTH [None]
  - EAR PRURITUS [None]
  - EMOTIONAL DISTRESS [None]
  - FOOD INTOLERANCE [None]
  - FUNGAL INFECTION [None]
  - GASTROOESOPHAGEAL REFLUX DISEASE [None]
  - INCREASED TENDENCY TO BRUISE [None]
  - KERATOCONJUNCTIVITIS SICCA [None]
  - MAJOR DEPRESSION [None]
  - MITRAL VALVE INCOMPETENCE [None]
  - MYOCARDIAL INFARCTION [None]
  - NASAL DISORDER [None]
  - NIGHT CRAMPS [None]
  - OVARIAN CYST [None]
  - POST-TRAUMATIC STRESS DISORDER [None]
  - TRICUSPID VALVE INCOMPETENCE [None]
